FAERS Safety Report 21345634 (Version 3)
Quarter: 2022Q4

REPORT INFORMATION
  Report Type: Spontaneous
  Country: CN (occurrence: None)
  Receive Date: 20220916
  Receipt Date: 20221108
  Transmission Date: 20230113
  Serious: Yes (Other)
  Sender: FDA-Public Use
  Company Number: 2022A278783

PATIENT
  Age: 85 Year
  Sex: Male

DRUGS (2)
  1. TAGRISSO [Suspect]
     Active Substance: OSIMERTINIB
     Indication: Non-small cell lung cancer
     Route: 048
     Dates: start: 20220527
  2. OMEGA-3 ACIDS [Concomitant]
     Active Substance: OMEGA-3 FATTY ACIDS

REACTIONS (7)
  - Respiratory tract infection [Unknown]
  - Interstitial lung disease [Unknown]
  - Sinusitis [Unknown]
  - Decreased appetite [Unknown]
  - Rash [Unknown]
  - Wrong technique in product usage process [Unknown]
  - Drug resistance [Unknown]
